FAERS Safety Report 24920933 (Version 3)
Quarter: 2025Q1

REPORT INFORMATION
  Report Type: Spontaneous
  Country: US (occurrence: US)
  Receive Date: 20250204
  Receipt Date: 20250317
  Transmission Date: 20250409
  Serious: No
  Sender: GLAXOSMITHKLINE
  Company Number: US-GSKCCFUS-Case-02200027_AE-120851

PATIENT
  Age: 66 Year
  Sex: Male
  Weight: 121.8 kg

DRUGS (1)
  1. TRELEGY ELLIPTA [Suspect]
     Active Substance: FLUTICASONE FUROATE\UMECLIDINIUM BROMIDE\VILANTEROL TRIFENATATE
     Indication: Product used for unknown indication

REACTIONS (3)
  - Lip swelling [Recovered/Resolved]
  - Urticaria [Recovered/Resolved]
  - Product complaint [Unknown]

NARRATIVE: CASE EVENT DATE: 20250115
